FAERS Safety Report 16754754 (Version 1)
Quarter: 2019Q3

REPORT INFORMATION
  Report Type: Spontaneous
  Country: US (occurrence: US)
  Receive Date: 20190829
  Receipt Date: 20190829
  Transmission Date: 20191005
  Serious: No
  Sender: FDA-Public Use
  Company Number: US-PFIZER INC-2019369080

PATIENT
  Age: 73 Year
  Sex: Female
  Weight: 48.99 kg

DRUGS (1)
  1. LIPITOR [Suspect]
     Active Substance: ATORVASTATIN CALCIUM
     Indication: BLOOD CHOLESTEROL
     Dosage: 20 MG, 1X/DAY (TWO 10MG TABLETS ONCE A DAY BY MOUTH)
     Route: 048
     Dates: start: 201908

REACTIONS (2)
  - Prescription drug used without a prescription [Unknown]
  - Muscle spasms [Recovered/Resolved]

NARRATIVE: CASE EVENT DATE: 201908
